FAERS Safety Report 11945343 (Version 2)
Quarter: 2016Q1

REPORT INFORMATION
  Report Type: Spontaneous
  Country: US (occurrence: US)
  Receive Date: 20160125
  Receipt Date: 20160211
  Transmission Date: 20160526
  Serious: Yes (Hospitalization, Other)
  Sender: FDA-Public Use
  Company Number: US-PFIZER INC-2016012888

PATIENT
  Age: 70 Year
  Sex: Female

DRUGS (3)
  1. ROBITUSSIN PEAK COLD MAXIMUM STRENGTH MULTI-SYMPTOM COLD [Suspect]
     Active Substance: DEXTROMETHORPHAN HYDROBROMIDE\GUAIFENESIN\PHENYLEPHRINE HYDROCHLORIDE
     Indication: NASAL CONGESTION
  2. ROBITUSSIN PEAK COLD MAXIMUM STRENGTH MULTI-SYMPTOM COLD [Suspect]
     Active Substance: DEXTROMETHORPHAN HYDROBROMIDE\GUAIFENESIN\PHENYLEPHRINE HYDROCHLORIDE
     Indication: COUGH
     Dosage: UNK (4 TIMES EVERY 4 HRS)
     Dates: start: 20151229, end: 20160101
  3. ROBITUSSIN PEAK COLD MAXIMUM STRENGTH MULTI-SYMPTOM COLD [Suspect]
     Active Substance: DEXTROMETHORPHAN HYDROBROMIDE\GUAIFENESIN\PHENYLEPHRINE HYDROCHLORIDE
     Indication: CHEST DISCOMFORT

REACTIONS (2)
  - Heart rate increased [Recovered/Resolved]
  - Product use issue [Unknown]

NARRATIVE: CASE EVENT DATE: 20160108
